FAERS Safety Report 12263046 (Version 1)
Quarter: 2016Q2

REPORT INFORMATION
  Report Type: Spontaneous
  Country: US (occurrence: US)
  Receive Date: 20160413
  Receipt Date: 20160413
  Transmission Date: 20160815
  Serious: No
  Sender: FDA-Public Use
  Company Number: US-ACTAVIS-2015-14431

PATIENT
  Sex: Female

DRUGS (2)
  1. PERMETHRIN (AMALLC) [Suspect]
     Active Substance: PERMETHRIN
     Dosage: UNK
     Route: 061
  2. PERMETHRIN (AMALLC) [Suspect]
     Active Substance: PERMETHRIN
     Indication: LICE INFESTATION
     Dosage: UNK, UNKNOWN
     Route: 061
     Dates: start: 20150615

REACTIONS (1)
  - Drug ineffective [Unknown]

NARRATIVE: CASE EVENT DATE: 20150615
